FAERS Safety Report 23292897 (Version 1)
Quarter: 2023Q4

REPORT INFORMATION
  Report Type: Spontaneous
  Country: US (occurrence: US)
  Receive Date: 20231213
  Receipt Date: 20231213
  Transmission Date: 20240109
  Serious: Yes (Hospitalization)
  Sender: FDA-Public Use
  Company Number: US-ABBVIE-5528898

PATIENT
  Age: 62 Year
  Sex: Female

DRUGS (1)
  1. VRAYLAR [Suspect]
     Active Substance: CARIPRAZINE
     Indication: Bipolar I disorder
     Dosage: STARTED ABOUT A YEAR AGO PROBABLY BE AROUND DEC 2022?FORM STRENGTH: 1.5 MILLIGRAM
     Route: 048
     Dates: start: 2022

REACTIONS (1)
  - Anaphylactic reaction [Recovered/Resolved]
